FAERS Safety Report 21801812 (Version 1)
Quarter: 2022Q4

REPORT INFORMATION
  Report Type: Spontaneous
  Country: ES (occurrence: ES)
  Receive Date: 20221230
  Receipt Date: 20221230
  Transmission Date: 20230113
  Serious: Yes (Hospitalization)
  Sender: FDA-Public Use
  Company Number: None

PATIENT
  Age: 80 Year
  Sex: Male

DRUGS (3)
  1. CLOPIDOGREL [Interacting]
     Active Substance: CLOPIDOGREL BISULFATE
     Indication: Cerebrovascular accident
     Dosage: (7300A)
     Route: 065
     Dates: start: 202201, end: 202202
  2. ASPIRIN [Interacting]
     Active Substance: ASPIRIN
     Indication: Cerebrovascular accident
     Dosage: EFG, 30 TABLETS (POLIPROPILENO - ALUMINIO)
     Route: 065
     Dates: start: 202101
  3. BEMIPARIN SODIUM [Interacting]
     Active Substance: BEMIPARIN SODIUM
     Indication: Peripheral ischaemia
     Dosage: 10,000 IU ANTI-XA/0.4 ML, 10 PRE-FILLED SYRINGES OF 0.4 ML
     Route: 065
     Dates: start: 20220116, end: 20220422

REACTIONS (2)
  - Retroperitoneal haematoma [Recovering/Resolving]
  - Drug interaction [Unknown]

NARRATIVE: CASE EVENT DATE: 20220216
